FAERS Safety Report 5228540-6 (Version None)
Quarter: 2007Q1

REPORT INFORMATION
  Report Type: 
  Country: None (occurrence: None)
  Receive Date: 20070205
  Receipt Date: 20061204
  Transmission Date: 20070707
  Serious: Yes (Life-Threatening, Disabling)
  Sender: FDA-Public Use
  Company Number: GB-AVENTIS-200620282GDDC

PATIENT
  Age: 17 Year
  Sex: Female
  Weight: 49 kg

DRUGS (1)
  1. FLAGYL [Suspect]
     Indication: VAGINITIS BACTERIAL
     Dates: start: 20050126, end: 20050126

REACTIONS (3)
  - CONVULSION [None]
  - HALLUCINATION, VISUAL [None]
  - MUSCLE TWITCHING [None]
